FAERS Safety Report 20977796 (Version 1)
Quarter: 2022Q2

REPORT INFORMATION
  Report Type: Spontaneous
  Country: AR (occurrence: AR)
  Receive Date: 20220618
  Receipt Date: 20220618
  Transmission Date: 20220720
  Serious: Yes (Death, Life-Threatening, Hospitalization, Other)
  Sender: FDA-Public Use
  Company Number: AR-UNITED THERAPEUTICS-UNT-2022-013268

PATIENT
  Sex: Male

DRUGS (5)
  1. REMODULIN [Suspect]
     Active Substance: TREPROSTINIL
     Indication: Pulmonary arterial hypertension
     Dosage: UNK, CONTINUING
     Route: 058
     Dates: start: 20191227, end: 20220523
  2. ACENOCOUMAROL [Suspect]
     Active Substance: ACENOCOUMAROL
     Indication: Product used for unknown indication
     Dosage: UNK
     Route: 065
  3. ACENOCOUMAROL [Suspect]
     Active Substance: ACENOCOUMAROL
     Dosage: UNK (DOSE DOUBLED)
     Route: 065
     Dates: start: 202205
  4. DIGOXIN [Concomitant]
     Active Substance: DIGOXIN
     Indication: Product used for unknown indication
     Dosage: UNK
     Route: 065
  5. OXYGEN [Concomitant]
     Active Substance: OXYGEN
     Indication: Product used for unknown indication
     Dosage: UNK
     Route: 065

REACTIONS (6)
  - Cardiac arrest [Fatal]
  - Pericardial haemorrhage [Fatal]
  - Haemodynamic instability [Unknown]
  - Epistaxis [Unknown]
  - Prothrombin time prolonged [Unknown]
  - International normalised ratio increased [Unknown]

NARRATIVE: CASE EVENT DATE: 20220101
